FAERS Safety Report 9398006 (Version 3)
Quarter: 2013Q3

REPORT INFORMATION
  Report Type: Spontaneous
  Country: IT (occurrence: IT)
  Receive Date: 20130712
  Receipt Date: 20130906
  Transmission Date: 20140515
  Serious: Yes (Hospitalization)
  Sender: FDA-Public Use
  Company Number: PHHY2013IT072443

PATIENT
  Sex: Female

DRUGS (8)
  1. TICLOPIDINE [Suspect]
     Indication: THROMBOSIS PROPHYLAXIS
     Dosage: 500 MG, QD
     Route: 048
     Dates: start: 19980101, end: 20130520
  2. ACETYLSALICYLIC ACID [Suspect]
     Indication: MYOCARDIAL ISCHAEMIA
     Dosage: 100 MG, QD
     Route: 048
     Dates: start: 19980101, end: 20130520
  3. COUMADINE [Suspect]
     Indication: ATRIAL FIBRILLATION
     Dosage: 5 MG, PRN
     Route: 048
     Dates: start: 19980101, end: 20130520
  4. GLIBOMET [Concomitant]
  5. CORDARONE [Concomitant]
     Route: 042
  6. NITRODERM [Concomitant]
     Dosage: 5 MG, UNK
  7. SIMVASTATIN [Concomitant]
     Indication: TYPE 2 DIABETES MELLITUS
  8. ENALAPRIL [Concomitant]
     Indication: HYPERTENSION

REACTIONS (1)
  - Anaemia [Recovering/Resolving]
